FAERS Safety Report 10616826 (Version 2)
Quarter: 2014Q4

REPORT INFORMATION
  Report Type: Report from Study
  Country: US (occurrence: US)
  Receive Date: 20141201
  Receipt Date: 20141201
  Transmission Date: 20150529
  Serious: Yes (Hospitalization)
  Sender: FDA-Public Use
  Company Number: US-SA-2014SA146994

PATIENT
  Sex: Male

DRUGS (1)
  1. LANTUS [Suspect]
     Active Substance: INSULIN GLARGINE
     Indication: TYPE 2 DIABETES MELLITUS
     Dosage: VIAL DOSE:40 UNIT(S)
     Route: 065

REACTIONS (5)
  - Drug administration error [Unknown]
  - Gait disturbance [Unknown]
  - Blood glucose increased [Recovering/Resolving]
  - Skin ulcer [Unknown]
  - Sciatica [Unknown]
